FAERS Safety Report 14452745 (Version 3)
Quarter: 2019Q2

REPORT INFORMATION
  Report Type: Spontaneous
  Country: JP (occurrence: JP)
  Receive Date: 20180129
  Receipt Date: 20190610
  Transmission Date: 20190711
  Serious: Yes (Other)
  Sender: FDA-Public Use
  Company Number: JP-JNJFOC-20180132105

PATIENT
  Age: 54 Year
  Sex: Male
  Weight: 115 kg

DRUGS (11)
  1. SELARA [Concomitant]
     Active Substance: EPLERENONE
     Dosage: BEFORE ADMINISTRATION OF CANAGLIFLOZIN
     Route: 048
     Dates: end: 20170106
  2. METGLUCO [Concomitant]
     Active Substance: METFORMIN HYDROCHLORIDE
     Indication: TYPE 2 DIABETES MELLITUS
     Dosage: BEFORE ADMINISTRATION OF CANAGLIFLOZIN
     Route: 048
     Dates: end: 20161209
  3. ONGLYZA [Concomitant]
     Active Substance: SAXAGLIPTIN HYDROCHLORIDE
     Indication: TYPE 2 DIABETES MELLITUS
     Route: 048
  4. MERCAZOLE [Concomitant]
     Active Substance: CARBIMAZOLE
     Dosage: 3.75 MG TWICE DAILY, BEFORE ADMINISTRATION OF CANAGLIFLOZIN
     Route: 048
     Dates: end: 20171018
  5. MERCAZOLE [Concomitant]
     Active Substance: CARBIMAZOLE
     Route: 048
     Dates: start: 20171019
  6. METGLUCO [Concomitant]
     Active Substance: METFORMIN HYDROCHLORIDE
     Indication: TYPE 2 DIABETES MELLITUS
     Route: 048
     Dates: start: 20171019
  7. GLIMEPIRIDE. [Concomitant]
     Active Substance: GLIMEPIRIDE
     Indication: TYPE 2 DIABETES MELLITUS
     Dosage: BEFORE ADMINISTRATION OF CANAGLIFLOZIN
     Route: 048
     Dates: end: 20170105
  8. GLIMEPIRIDE. [Concomitant]
     Active Substance: GLIMEPIRIDE
     Indication: TYPE 2 DIABETES MELLITUS
     Route: 048
     Dates: start: 20170106, end: 20170612
  9. CANAGLU [Suspect]
     Active Substance: CANAGLIFLOZIN
     Indication: TYPE 2 DIABETES MELLITUS
     Route: 048
     Dates: start: 20151028
  10. FEBURIC [Concomitant]
     Active Substance: FEBUXOSTAT
     Dosage: BEFORE ADMINISTRATION OF CANAGLIFLOZIN
     Route: 048
  11. GLIMEPIRIDE. [Concomitant]
     Active Substance: GLIMEPIRIDE
     Indication: TYPE 2 DIABETES MELLITUS
     Dosage: BEFORE ADMINISTRATION OF CANAGLIFLOZIN
     Route: 048
     Dates: end: 20161025

REACTIONS (2)
  - Hypertension [Recovering/Resolving]
  - Gastric ulcer [Recovered/Resolved]

NARRATIVE: CASE EVENT DATE: 201611
